FAERS Safety Report 9915807 (Version 1)
Quarter: 2014Q1

REPORT INFORMATION
  Report Type: Spontaneous
  Country: DE (occurrence: None)
  Receive Date: 20140218
  Receipt Date: 20140218
  Transmission Date: 20141002
  Serious: Yes (Life-Threatening, Hospitalization, Disabling)
  Sender: FDA-Public Use
  Company Number: DSM-2014-00131

PATIENT
  Age: 70 Year
  Sex: Female
  Weight: 61 kg

DRUGS (6)
  1. VOTUM [Suspect]
     Indication: HYPERTENSION
     Route: 048
     Dates: start: 200608, end: 20140105
  2. HUMALOG (INSULIN LISPRO) (INSULIN LISPRO) [Concomitant]
  3. LEVEMIR (INSULIN DETEMIR) (INSULIN DETEMIR) [Concomitant]
  4. L-THYROXIN [Concomitant]
  5. GABAPENTIN [Concomitant]
  6. PANTOPRAZOLE [Concomitant]

REACTIONS (9)
  - Colitis microscopic [None]
  - Hypokalaemia [None]
  - Weight decreased [None]
  - Diverticulum intestinal [None]
  - Liver function test abnormal [None]
  - Proteinuria [None]
  - Oedema peripheral [None]
  - Pleural effusion [None]
  - Depression [None]
